FAERS Safety Report 16980528 (Version 2)
Quarter: 2020Q1

REPORT INFORMATION
  Report Type: Spontaneous
  Country: FR (occurrence: FR)
  Receive Date: 20191031
  Receipt Date: 20200114
  Transmission Date: 20200409
  Serious: Yes (Hospitalization)
  Sender: FDA-Public Use
  Company Number: FR-TEVA-2019-FR-1130021

PATIENT
  Age: 83 Year
  Sex: Male

DRUGS (2)
  1. GENTAMICINE [Concomitant]
     Active Substance: GENTAMICIN
     Indication: INFECTION
     Route: 042
     Dates: start: 20190905
  2. VANCOMYCINE [Suspect]
     Active Substance: VANCOMYCIN
     Indication: INFECTION
     Route: 042
     Dates: start: 20190905, end: 20190918

REACTIONS (7)
  - Rash macular [Recovered/Resolved]
  - Eosinophilia [Recovered/Resolved]
  - Petechiae [Recovered/Resolved]
  - Thrombocytopenia [Recovered/Resolved]
  - Pyrexia [Recovered/Resolved]
  - Acute kidney injury [Recovering/Resolving]
  - Hepatocellular injury [Recovered/Resolved]

NARRATIVE: CASE EVENT DATE: 20190914
